FAERS Safety Report 7208339-1 (Version None)
Quarter: 2010Q4

REPORT INFORMATION
  Report Type: 
  Country: None (occurrence: None)
  Receive Date: 20101222
  Receipt Date: 20101215
  Transmission Date: 20110411
  Serious: Yes (Other)
  Sender: FDA-Public Use
  Company Number: TRP_07468_2010

PATIENT
  Sex: Male
  Weight: 93.441 kg

DRUGS (2)
  1. INFERGEN [Suspect]
     Indication: HEPATITIS C
     Dosage: (15 ?G QD SUBCUTANEOUS)
     Route: 058
     Dates: start: 20101201
  2. RIBAVIRIN [Suspect]
     Indication: HEPATITIS C
     Dosage: (1200 MG, DAILY ORAL)
     Route: 048
     Dates: start: 20101201

REACTIONS (6)
  - DEPRESSION [None]
  - DISEASE RECURRENCE [None]
  - DRY SKIN [None]
  - FATIGUE [None]
  - MIGRAINE [None]
  - SKIN FISSURES [None]
